FAERS Safety Report 25497862 (Version 3)
Quarter: 2025Q3

REPORT INFORMATION
  Report Type: Report from Study
  Country: CA (occurrence: CA)
  Receive Date: 20250701
  Receipt Date: 20250718
  Transmission Date: 20251021
  Serious: Yes (Other)
  Sender: BIOGEN
  Company Number: CA-BIOGEN-2025BI01315631

PATIENT
  Age: 54 Year
  Sex: Female

DRUGS (1)
  1. TECFIDERA [Suspect]
     Active Substance: DIMETHYL FUMARATE
     Indication: Multiple sclerosis
     Route: 050
     Dates: start: 20210201

REACTIONS (7)
  - Blindness unilateral [Unknown]
  - Angle closure glaucoma [Unknown]
  - Corneal opacity [Unknown]
  - Pupillary reflex impaired [Unknown]
  - Eye pain [Unknown]
  - Intraocular pressure increased [Unknown]
  - Anterior chamber cell [Unknown]

NARRATIVE: CASE EVENT DATE: 20250605
